FAERS Safety Report 7356546-X (Version None)
Quarter: 2011Q1

REPORT INFORMATION
  Report Type: 
  Country: None (occurrence: None)
  Receive Date: 20110316
  Receipt Date: 20110302
  Transmission Date: 20110831
  Serious: Yes (Other)
  Sender: FDA-Public Use
  Company Number: PHHY2011JP10526

PATIENT
  Age: 32 Year
  Sex: Male

DRUGS (1)
  1. ZOMETA [Suspect]
     Dosage: 4 MG PER ADMININSTRATION, UNK
     Route: 041

REACTIONS (1)
  - OSTEONECROSIS OF JAW [None]
